FAERS Safety Report 6747124-1 (Version None)
Quarter: 2010Q2

REPORT INFORMATION
  Report Type: 
  Country: None (occurrence: None)
  Receive Date: 20100526
  Receipt Date: 20100419
  Transmission Date: 20101027
  Serious: Yes (Other)
  Sender: FDA-Public Use
  Company Number: 2010SP024515

PATIENT
  Age: 69 Year
  Sex: Male
  Weight: 47.4 kg

DRUGS (6)
  1. SUGAMMADEX SODIUM [Suspect]
     Indication: NEUROMUSCULAR BLOCKADE REVERSAL
     Dosage: 200 MG; ONCE; IV
     Route: 042
     Dates: start: 20100419
  2. ROCURONIUM BROMIDE [Suspect]
     Indication: NEUROMUSCULAR BLOCKING THERAPY
     Dosage: 30 MG; ONCE; IV
     Route: 042
     Dates: start: 20100419
  3. ROCURONIUM BROMIDE [Suspect]
     Indication: NEUROMUSCULAR BLOCKING THERAPY
     Dosage: 30 MG; ONCE; IV
     Route: 042
     Dates: start: 20100419
  4. FENTANYL [Concomitant]
  5. ULTIVA [Concomitant]
  6. DIPRIVAN [Concomitant]

REACTIONS (1)
  - POST PROCEDURAL HAEMORRHAGE [None]
